FAERS Safety Report 4469629-9 (Version None)
Quarter: 2004Q3

REPORT INFORMATION
  Report Type: 
  Country: None (occurrence: None)
  Receive Date: 20040920
  Receipt Date: 20040813
  Transmission Date: 20050211
  Serious: Yes (Other)
  Sender: FDA-Public Use
  Company Number: PHEH2004US06313

PATIENT
  Age: 76 Year
  Sex: Male

DRUGS (7)
  1. ZOMETA [Suspect]
     Indication: MULTIPLE MYELOMA
     Dosage: 4 MG EVERY 4 WEEKS, INTRAVENOUS
     Route: 042
     Dates: start: 20020101, end: 20040401
  2. FLUNISOLIDE (FLUNISOLIDE) [Concomitant]
  3. GLIPIZIDE [Concomitant]
  4. INSULIN [Concomitant]
  5. LORATADINE [Concomitant]
  6. MELPHALAN (MELPHALAN) [Concomitant]
  7. PREDNISONE [Concomitant]

REACTIONS (7)
  - ANAEMIA [None]
  - BONE DEBRIDEMENT [None]
  - BONE DISORDER [None]
  - IMPAIRED HEALING [None]
  - OSTEONECROSIS [None]
  - RADIOTHERAPY [None]
  - TOOTH EXTRACTION [None]
